FAERS Safety Report 7246902-2 (Version None)
Quarter: 2011Q1

REPORT INFORMATION
  Report Type: 
  Country: None (occurrence: None)
  Receive Date: 20110127
  Receipt Date: 20110121
  Transmission Date: 20110831
  Serious: Yes (Other)
  Sender: FDA-Public Use
  Company Number: US-BRISTOL-MYERS SQUIBB COMPANY-15504061

PATIENT
  Age: 61 Year
  Sex: Male

DRUGS (4)
  1. LEXAPRO [Concomitant]
  2. ABILIFY [Suspect]
     Indication: DEPRESSION
     Dosage: INITIAL DOSE:10MG DAILY,TITRATED DOWN TO 5,THEN TO 2MG DAILY
     Dates: start: 20100801
  3. NORTRIPTYLINE [Concomitant]
  4. ATIVAN [Concomitant]

REACTIONS (1)
  - MANIA [None]
